FAERS Safety Report 5097854-5 (Version None)
Quarter: 2006Q3

REPORT INFORMATION
  Report Type: 
  Country: None (occurrence: None)
  Receive Date: 20060905
  Receipt Date: 20060818
  Transmission Date: 20061208
  Serious: Yes (Death)
  Sender: FDA-Public Use
  Company Number: 221436

PATIENT
  Age: 73 Year
  Sex: Female

DRUGS (5)
  1. AVASTIN [Suspect]
     Indication: COLON CANCER
     Dosage: 458 MG, Q3W, INTRAVENOUS
     Route: 042
     Dates: start: 20051129
  2. CAPECITABINE (CAPECITABINE) [Suspect]
     Indication: COLON CANCER
     Dosage: 1650 MG, Q3W, ORAL
     Route: 048
     Dates: start: 20051129
  3. OXALIPLATIN [Suspect]
     Indication: COLON CANCER
     Dosage: 209 MG, Q3W, INTRAVENOUS
     Route: 042
     Dates: start: 20051129
  4. ZOFRAN [Concomitant]
  5. PROCHLORPERAZINE [Concomitant]

REACTIONS (16)
  - ASTHENIA [None]
  - BLOOD CREATININE INCREASED [None]
  - CREATININE RENAL CLEARANCE DECREASED [None]
  - DEHYDRATION [None]
  - DYSPNOEA [None]
  - ENTEROCOLITIS HAEMORRHAGIC [None]
  - ESCHERICHIA URINARY TRACT INFECTION [None]
  - ILEUS [None]
  - ISCHAEMIC STROKE [None]
  - LUNG CONSOLIDATION [None]
  - NEUTROPHIL COUNT DECREASED [None]
  - OESOPHAGITIS [None]
  - PALPITATIONS [None]
  - PLEURAL EFFUSION [None]
  - SEPTIC SHOCK [None]
  - THROMBOCYTOPENIA [None]
